FAERS Safety Report 10712913 (Version 1)
Quarter: 2015Q1

REPORT INFORMATION
  Report Type: Spontaneous
  Country: US (occurrence: None)
  Receive Date: 20150114
  Receipt Date: 20150114
  Transmission Date: 20150721
  Serious: Yes (Other)
  Sender: FDA-Public Use
  Company Number: None

PATIENT
  Age: 50 Year
  Sex: Female
  Weight: 58.97 kg

DRUGS (2)
  1. LEVOTHYROXIN [Concomitant]
     Active Substance: LEVOTHYROXINE
  2. FLUCONAZOLE TABLETS [Suspect]
     Active Substance: FLUCONAZOLE
     Indication: FUNGAL INFECTION
     Dosage: 150MG?1 TABLET PRESCRIPT (2)?3 DAYS?BY MOUTH
     Route: 048
     Dates: start: 20141203, end: 20141203

REACTIONS (2)
  - Eyelid oedema [None]
  - Urticaria [None]

NARRATIVE: CASE EVENT DATE: 20141204
